FAERS Safety Report 14905421 (Version 1)
Quarter: 2018Q2

REPORT INFORMATION
  Report Type: Spontaneous
  Country: US (occurrence: US)
  Receive Date: 20180517
  Receipt Date: 20180517
  Transmission Date: 20180711
  Serious: No
  Sender: FDA-Public Use
  Company Number: US-SA-2017SA254001

PATIENT
  Age: 82 Year
  Sex: Female

DRUGS (7)
  1. LANTUS SOLOSTAR [Suspect]
     Active Substance: INSULIN GLARGINE
     Indication: TYPE 2 DIABETES MELLITUS
     Dosage: DOSE:14 UNIT(S)
     Route: 051
     Dates: start: 2007, end: 2017
  2. SOLOSTAR [Suspect]
     Active Substance: DEVICE
     Dates: start: 2017
  3. LANTUS SOLOSTAR [Suspect]
     Active Substance: INSULIN GLARGINE
     Indication: TYPE 2 DIABETES MELLITUS
     Dosage: DOSE:18 UNIT(S)
     Route: 051
     Dates: start: 2017
  4. SOLOSTAR [Suspect]
     Active Substance: DEVICE
     Dates: start: 2007, end: 2017
  5. HUMALOG [Concomitant]
     Active Substance: INSULIN LISPRO
     Route: 065
  6. SOLOSTAR [Suspect]
     Active Substance: DEVICE
     Dates: start: 2017
  7. LANTUS SOLOSTAR [Suspect]
     Active Substance: INSULIN GLARGINE
     Indication: TYPE 2 DIABETES MELLITUS
     Dosage: DOSE:28 UNIT(S)
     Route: 051
     Dates: start: 2017

REACTIONS (4)
  - Drug ineffective [Unknown]
  - Product storage error [Unknown]
  - Glycosylated haemoglobin increased [Unknown]
  - Blood glucose increased [Unknown]

NARRATIVE: CASE EVENT DATE: 2017
